FAERS Safety Report 8128091-5 (Version None)
Quarter: 2012Q1

REPORT INFORMATION
  Report Type: 
  Country: None (occurrence: None)
  Receive Date: 20120210
  Receipt Date: 20111229
  Transmission Date: 20120608
  Serious: No
  Sender: FDA-Public Use
  Company Number: US-ABBOTT-11P-163-0887739-00

PATIENT
  Age: 47 Year
  Sex: Male

DRUGS (4)
  1. ISENTRESS [Concomitant]
     Indication: HIV INFECTION
  2. NORVIR [Suspect]
     Indication: HIV INFECTION
  3. PREZISTA [Concomitant]
     Indication: HIV INFECTION
  4. VIIBRYD [Interacting]
     Indication: ANXIETY
     Route: 048
     Dates: start: 20111206, end: 20111206

REACTIONS (4)
  - PALPITATIONS [None]
  - CHILLS [None]
  - DRUG INTERACTION [None]
  - VENTRICULAR EXTRASYSTOLES [None]
